FAERS Safety Report 20323162 (Version 1)
Quarter: 2022Q1

REPORT INFORMATION
  Report Type: Spontaneous
  Country: US (occurrence: US)
  Receive Date: 20220111
  Receipt Date: 20220111
  Transmission Date: 20220423
  Serious: No
  Sender: FDA-Public Use
  Company Number: US-NOVOPROD-821003

PATIENT

DRUGS (1)
  1. RYBELSUS [Suspect]
     Active Substance: SEMAGLUTIDE
     Indication: Product used for unknown indication
     Dosage: UNK
     Route: 058

REACTIONS (7)
  - Retching [Recovering/Resolving]
  - Back pain [Unknown]
  - Pain in extremity [Unknown]
  - Cognitive disorder [Unknown]
  - Stress [Unknown]
  - Bowel movement irregularity [Recovering/Resolving]
  - Fatigue [Unknown]
